FAERS Safety Report 6555194-9 (Version None)
Quarter: 2010Q1

REPORT INFORMATION
  Report Type: 
  Country: None (occurrence: None)
  Receive Date: 20100112
  Receipt Date: 20091209
  Transmission Date: 20100710
  Serious: Yes (Other)
  Sender: FDA-Public Use
  Company Number: 20090602

PATIENT
  Age: 68 Year
  Sex: Male
  Weight: 70.3075 kg

DRUGS (2)
  1. CYANOCOBALAMIN                  USP (0031-25) 1000 [Suspect]
     Indication: VITAMIN B12 DEFICIENCY
     Dosage: 1000 MCG, DAILY X 5;
     Route: 058
     Dates: start: 20091030, end: 20091103
  2. MIRAPEX [Concomitant]

REACTIONS (3)
  - DIZZINESS [None]
  - HEADACHE [None]
  - MUSCULAR WEAKNESS [None]
